FAERS Safety Report 9772801 (Version 1)
Quarter: 2013Q4

REPORT INFORMATION
  Report Type: Spontaneous
  Country: US (occurrence: None)
  Receive Date: 20131218
  Receipt Date: 20131218
  Transmission Date: 20140711
  Serious: Yes (Hospitalization)
  Sender: FDA-Public Use
  Company Number: None

PATIENT
  Age: 77 Year
  Sex: Female
  Weight: 65.9 kg

DRUGS (9)
  1. AMIODARONE [Suspect]
     Indication: ATRIAL FIBRILLATION
     Dosage: UNKNOWN DURATION OF USE
     Route: 048
  2. DIOVAN [Concomitant]
  3. ENTERIC COATED ASPIRIN [Concomitant]
  4. METFORMIN [Concomitant]
  5. SIMVASTATIN [Concomitant]
  6. SYNTHROID [Concomitant]
  7. AMIODARONE [Concomitant]
  8. LISINOPRIL [Concomitant]
  9. OMEPRAZOLE [Concomitant]

REACTIONS (9)
  - Productive cough [None]
  - Pneumonia [None]
  - Respiratory failure [None]
  - Mental status changes [None]
  - Toxicity to various agents [None]
  - Acute respiratory distress syndrome [None]
  - Hypoxia [None]
  - Sepsis [None]
  - Renal failure acute [None]
